FAERS Safety Report 5272549-3 (Version None)
Quarter: 2007Q1

REPORT INFORMATION
  Report Type: 
  Country: None (occurrence: None)
  Receive Date: 20070322
  Receipt Date: 20070314
  Transmission Date: 20070707
  Serious: Yes (Death)
  Sender: FDA-Public Use
  Company Number: JP-AVENTIS-200710625JP

PATIENT
  Age: 65 Year
  Sex: Male
  Weight: 60 kg

DRUGS (17)
  1. TAXOTERE [Suspect]
     Indication: NON-SMALL CELL LUNG CANCER
     Route: 041
     Dates: start: 20061212, end: 20061212
  2. ADONA                              /00056903/ [Concomitant]
     Route: 048
  3. TRANSAMIN [Concomitant]
     Route: 048
  4. MOBIC [Concomitant]
     Route: 048
  5. ADALAT [Concomitant]
     Route: 048
  6. PREDONINE                          /00016201/ [Concomitant]
     Route: 048
  7. NAUZELIN [Concomitant]
     Route: 048
  8. LOXOPROFEN [Concomitant]
     Route: 048
  9. MUCOSTA [Concomitant]
     Route: 048
  10. OMEPRAL [Concomitant]
     Route: 048
  11. OMEPRAL [Concomitant]
     Route: 042
  12. MAGLAX [Concomitant]
     Route: 048
  13. MEROPEN [Concomitant]
     Route: 042
  14. CARBENIN [Concomitant]
     Route: 042
  15. SOL MEDROL [Concomitant]
     Route: 042
  16. KYTRIL                             /01178101/ [Concomitant]
     Route: 042
  17. MORPHINE [Concomitant]
     Route: 042

REACTIONS (1)
  - INTERSTITIAL LUNG DISEASE [None]
